FAERS Safety Report 23040502 (Version 1)
Quarter: 2023Q4

REPORT INFORMATION
  Report Type: Spontaneous
  Country: US (occurrence: US)
  Receive Date: 20231006
  Receipt Date: 20231006
  Transmission Date: 20240109
  Serious: No
  Sender: FDA-Public Use
  Company Number: US-TEVA-2023-US-2928990

PATIENT
  Age: 78 Year
  Sex: Female

DRUGS (2)
  1. CLONAZEPAM [Suspect]
     Active Substance: CLONAZEPAM
     Indication: Anxiety
     Dosage: SPLIT THE 1 MG CLONAZEPAM TABLETS IN HALF FOR ADMINISTRATION AND TAKE ONE HALF IN THE MORNING AND ON
     Route: 065
     Dates: start: 20230917
  2. CLONAZEPAM [Suspect]
     Active Substance: CLONAZEPAM
     Indication: Depression
     Dosage: 4 DOSAGE FORMS DAILY; TWO 0.5 MG TABLETS, ONE EVERY MORNING AND ONE AT BEDTIME
     Route: 065
     Dates: start: 20230917

REACTIONS (6)
  - Feeling jittery [Unknown]
  - Tremor [Unknown]
  - Insomnia [Unknown]
  - Product use in unapproved indication [Unknown]
  - Product quality issue [Unknown]
  - Wrong technique in product usage process [Unknown]

NARRATIVE: CASE EVENT DATE: 20230917
